FAERS Safety Report 18230594 (Version 3)
Quarter: 2021Q1

REPORT INFORMATION
  Report Type: Spontaneous
  Country: US (occurrence: US)
  Receive Date: 20200904
  Receipt Date: 20210205
  Transmission Date: 20210419
  Serious: No
  Sender: FDA-Public Use
  Company Number: US-AMGEN-USASP2020142969

PATIENT
  Age: 45 Year
  Sex: Male

DRUGS (4)
  1. OTEZLA [Suspect]
     Active Substance: APREMILAST
     Dosage: 30 MILLIGRAM, BID
     Route: 048
     Dates: start: 202008
  2. OTEZLA [Suspect]
     Active Substance: APREMILAST
     Dosage: 30 MILLIGRAM, BID
     Route: 048
  3. OTEZLA [Suspect]
     Active Substance: APREMILAST
     Indication: PSORIASIS
     Dosage: 30 MILLIGRAM, BID
     Route: 048
     Dates: start: 20200807
  4. AMOXICILLIN. [Concomitant]
     Active Substance: AMOXICILLIN

REACTIONS (3)
  - Diarrhoea [Not Recovered/Not Resolved]
  - Infection [Not Recovered/Not Resolved]
  - Upper respiratory tract infection [Not Recovered/Not Resolved]

NARRATIVE: CASE EVENT DATE: 2020
